FAERS Safety Report 16416170 (Version 5)
Quarter: 2019Q3

REPORT INFORMATION
  Report Type: Report from Study
  Country: JP (occurrence: JP)
  Receive Date: 20190611
  Receipt Date: 20190909
  Transmission Date: 20191004
  Serious: Yes (Hospitalization)
  Sender: FDA-Public Use
  Company Number: JP-AMGEN-JPNNI2019032019

PATIENT
  Age: 8 Year
  Sex: Female

DRUGS (10)
  1. DAIPHEN [Concomitant]
     Active Substance: SULFAMETHOXAZOLE\TRIMETHOPRIM
     Dosage: UNK
  2. BLINATUMOMAB [Suspect]
     Active Substance: BLINATUMOMAB
     Dosage: 5 MICROGRAM/SQ. METER, QD
     Route: 041
     Dates: start: 20190302, end: 20190308
  3. BLINATUMOMAB [Suspect]
     Active Substance: BLINATUMOMAB
     Dosage: 15 MICROGRAM/SQ. METER, QD
     Route: 041
     Dates: start: 20190309, end: 20190321
  4. BLINATUMOMAB [Suspect]
     Active Substance: BLINATUMOMAB
     Indication: ACUTE LYMPHOCYTIC LEUKAEMIA REFRACTORY
     Dosage: 5 MICROGRAM/SQ. METER, QD
     Route: 041
     Dates: start: 20190221, end: 20190224
  5. MAGNESIUM OXIDE. [Concomitant]
     Active Substance: MAGNESIUM OXIDE
     Dosage: UNK
  6. CARBOCISTEINE [Concomitant]
     Active Substance: CARBOCYSTEINE
     Dosage: UNK
  7. ASVERIN (TIPEPIDINE HIBENZATE) [Concomitant]
     Active Substance: TIPEPIDINE HIBENZATE
     Dosage: UNK
  8. FLUCONAZOLE. [Concomitant]
     Active Substance: FLUCONAZOLE
     Dosage: UNK
     Route: 048
  9. BLINATUMOMAB [Suspect]
     Active Substance: BLINATUMOMAB
     Dosage: 15 MICROGRAM/SQ. METER
     Route: 041
     Dates: start: 2019, end: 20190514
  10. BLINATUMOMAB [Suspect]
     Active Substance: BLINATUMOMAB
     Dosage: UNK
     Route: 065
     Dates: start: 20190701

REACTIONS (12)
  - Platelet count decreased [Recovering/Resolving]
  - Abdominal pain [Unknown]
  - Cough [Unknown]
  - White blood cell count decreased [Recovered/Resolved]
  - Alanine aminotransferase increased [Recovered/Resolved]
  - Neutrophil count decreased [Recovered/Resolved]
  - Pain [Unknown]
  - Interstitial lung disease [Recovering/Resolving]
  - Hypoxia [Unknown]
  - Pyrexia [Recovered/Resolved]
  - Arthralgia [Unknown]
  - CSF protein increased [Unknown]

NARRATIVE: CASE EVENT DATE: 20190221
